FAERS Safety Report 8617308-6 (Version None)
Quarter: 2012Q3

REPORT INFORMATION
  Report Type: 
  Country: None (occurrence: None)
  Receive Date: 20120823
  Receipt Date: 20120810
  Transmission Date: 20120928
  Serious: Yes (Other)
  Sender: FDA-Public Use
  Company Number: TR-MYLANLABS-2012S1016662

PATIENT
  Age: 1 Decade
  Sex: Female

DRUGS (1)
  1. PROPRANOLOL [Suspect]
     Indication: SUPRAVENTRICULAR TACHYCARDIA
     Route: 065

REACTIONS (1)
  - ACCELERATED IDIOVENTRICULAR RHYTHM [None]
